FAERS Safety Report 7938900-8 (Version None)
Quarter: 2011Q4

REPORT INFORMATION
  Report Type: 
  Country: None (occurrence: None)
  Receive Date: 20111124
  Receipt Date: 20111121
  Transmission Date: 20120403
  Serious: Yes (Other)
  Sender: FDA-Public Use
  Company Number: CHPA2011US016535

PATIENT
  Age: 83 Year
  Sex: Female

DRUGS (1)
  1. GAS-X CHEWABLE TABLETS CHERRY CREME [Suspect]
     Indication: FLATULENCE
     Dosage: UNK, UNK
     Route: 048

REACTIONS (3)
  - GASTROINTESTINAL DISORDER [None]
  - MATERNAL EXPOSURE DURING PREGNANCY [None]
  - ULCER [None]
